FAERS Safety Report 9465500 (Version 2)
Quarter: 2013Q3

REPORT INFORMATION
  Report Type: Spontaneous
  Country: IT (occurrence: IT)
  Receive Date: 20130820
  Receipt Date: 20130911
  Transmission Date: 20140515
  Serious: Yes (Hospitalization)
  Sender: FDA-Public Use
  Company Number: IT-BRISTOL-MYERS SQUIBB COMPANY-19182674

PATIENT
  Age: 64 Year
  Sex: Male

DRUGS (1)
  1. WARFARIN SODIUM [Suspect]
     Indication: ATRIAL FIBRILLATION
     Dosage: 19-JUN-2013 TO 19-JUL-2013?DOSAGE/5MG/DAILY/ORALLY.
     Route: 048
     Dates: start: 20130619

REACTIONS (2)
  - Erythrodermic psoriasis [Recovering/Resolving]
  - Renal failure acute [Recovering/Resolving]
